FAERS Safety Report 11077270 (Version 2)
Quarter: 2015Q2

REPORT INFORMATION
  Report Type: Report from Study
  Country: BR (occurrence: BR)
  Receive Date: 20150429
  Receipt Date: 20150519
  Transmission Date: 20150821
  Serious: Yes (Hospitalization, Other)
  Sender: FDA-Public Use
  Company Number: PHHY2015BR011384

PATIENT
  Sex: Female
  Weight: 65 kg

DRUGS (1)
  1. EXELON PATCH [Suspect]
     Active Substance: RIVASTIGMINE
     Indication: DEMENTIA ALZHEIMER^S TYPE
     Dosage: PATCH 10 (CM2)
     Route: 062
     Dates: start: 201401

REACTIONS (11)
  - Urinary tract infection [Recovered/Resolved]
  - Weight decreased [Unknown]
  - Aspiration [Recovered/Resolved]
  - Gait disturbance [Unknown]
  - Lung infection [Recovered/Resolved]
  - Stress [Not Recovered/Not Resolved]
  - Malaise [Unknown]
  - Pneumonia [Unknown]
  - Urinary tract infection [Recovered/Resolved]
  - Application site pruritus [Not Recovered/Not Resolved]
  - Application site discolouration [Not Recovered/Not Resolved]

NARRATIVE: CASE EVENT DATE: 201412
